FAERS Safety Report 8942544 (Version 1)
Quarter: 2012Q4

REPORT INFORMATION
  Report Type: Spontaneous
  Country: JP (occurrence: None)
  Receive Date: 20121123
  Receipt Date: 20121123
  Transmission Date: 20130627
  Serious: Yes (Hospitalization)
  Sender: FDA-Public Use
  Company Number: 2012-20051

PATIENT
  Age: 9 Year
  Sex: Male
  Weight: 27 kg

DRUGS (8)
  1. LEVETIRACETAM [Suspect]
     Indication: EPILEPTIC SEIZURE
     Dosage: 750 mg,  UNK, Unknown
  2. LEVETIRACETAM [Suspect]
     Indication: EPILEPTIC SEIZURE
     Dosage: 500 mg, x 2 wks, Unknown
  3. LEVETIRACETAM [Suspect]
     Indication: EPILEPTIC SEIZURE
     Dosage: 250 mg, x 4 wks, Unknown
  4. LEVETIRACETAM [Suspect]
     Indication: EPILEPTIC SEIZURE
     Dosage: 125 mg, x 2 wks, Unknown
  5. VALPROATE SODIUM (VALPROATE SODIUM) [Concomitant]
  6. ZONISAMIDE (ZONISAMIDE) [Concomitant]
  7. CLOBAZAM (CLOBAZAM) [Concomitant]
  8. LAMOTRIGINE (LAMOTRIGINE) [Concomitant]

REACTIONS (3)
  - Somnolence [None]
  - Status epilepticus [None]
  - Initial insomnia [None]
